FAERS Safety Report 25440636 (Version 2)
Quarter: 2025Q4

REPORT INFORMATION
  Report Type: Spontaneous
  Country: US (occurrence: None)
  Receive Date: 20250616
  Receipt Date: 20251024
  Transmission Date: 20260117
  Serious: No
  Sender: UCB
  Company Number: US-UCBSA-2025012892

PATIENT
  Age: 60 Year

DRUGS (6)
  1. BIMZELX [Suspect]
     Active Substance: BIMEKIZUMAB-BKZX
     Indication: Psoriasis
     Dosage: 320 MILLIGRAM, EV 8 WEEKS
  2. BIMZELX [Suspect]
     Active Substance: BIMEKIZUMAB-BKZX
     Indication: Dermatitis atopic
  3. BIMZELX [Suspect]
     Active Substance: BIMEKIZUMAB-BKZX
     Indication: Off label use
  4. METHOTREXATE [Concomitant]
     Active Substance: METHOTREXATE
     Indication: Skin disorder
     Dosage: UNK
  5. SKYRIZI [Concomitant]
     Active Substance: RISANKIZUMAB-RZAA
     Indication: Skin disorder
     Dosage: UNK
  6. DUPIXENT [Concomitant]
     Active Substance: DUPILUMAB
     Indication: Product used for unknown indication
     Dosage: INJECT 2 PENS UNDER THE SKIN ON DAY 1, THEN INJECT 1 PEN ON DAY 15, THEN 1 PEN EVERY 14 DAYS THEREAFTER

REACTIONS (4)
  - Psoriasis [Unknown]
  - Dermatitis atopic [Unknown]
  - Drug ineffective [Unknown]
  - Off label use [Unknown]
